FAERS Safety Report 14191503 (Version 4)
Quarter: 2019Q2

REPORT INFORMATION
  Report Type: Spontaneous
  Country: US (occurrence: US)
  Receive Date: 20171115
  Receipt Date: 20190517
  Transmission Date: 20190711
  Serious: No
  Sender: FDA-Public Use
  Company Number: US-CELLTRION INC.-2017US013850

PATIENT

DRUGS (4)
  1. INFLECTRA [Suspect]
     Active Substance: INFLIXIMAB-DYYB
     Indication: PSORIATIC ARTHROPATHY
     Dosage: 3 MG/KG AT 0,2,6,AND THEN 8 WEEKS
     Route: 065
  2. PREDNISONE. [Concomitant]
     Active Substance: PREDNISONE
     Dosage: UNK
     Dates: start: 20170316
  3. INFLECTRA [Suspect]
     Active Substance: INFLIXIMAB-DYYB
     Dosage: 525 MG, EVERY 8 WEEKS
     Route: 065
     Dates: start: 20171019, end: 20181128
  4. METHOTREXATE. [Concomitant]
     Active Substance: METHOTREXATE
     Dosage: UNK
     Dates: start: 20170322

REACTIONS (11)
  - Hypersensitivity [Recovered/Resolved]
  - Nasopharyngitis [Unknown]
  - Product prescribing issue [Unknown]
  - Sneezing [Unknown]
  - Feeling abnormal [Unknown]
  - Chest discomfort [Unknown]
  - Pyrexia [Unknown]
  - Hyperhidrosis [Recovering/Resolving]
  - Chest pain [Recovered/Resolved]
  - Flushing [Recovering/Resolving]
  - Blood pressure increased [Unknown]

NARRATIVE: CASE EVENT DATE: 20171019
